FAERS Safety Report 22280231 (Version 3)
Quarter: 2023Q2

REPORT INFORMATION
  Report Type: Spontaneous
  Country: US (occurrence: US)
  Receive Date: 20230503
  Receipt Date: 20230629
  Transmission Date: 20230722
  Serious: No
  Sender: FDA-Public Use
  Company Number: US-PFIZER INC-202300176384

PATIENT
  Age: 67 Year
  Sex: Female
  Weight: 106.14 kg

DRUGS (4)
  1. PREMARIN [Suspect]
     Active Substance: ESTROGENS, CONJUGATED
     Indication: Hormone replacement therapy
     Dosage: 1.25 MG, 1X/DAY
     Route: 048
     Dates: start: 1994
  2. HYDROCHLOROTHIAZIDE [Concomitant]
     Active Substance: HYDROCHLOROTHIAZIDE
     Indication: Blood pressure abnormal
     Dosage: 12.5 MG
     Dates: start: 20230207
  3. CLONAZEPAM [Concomitant]
     Active Substance: CLONAZEPAM
     Indication: Anxiety
     Dosage: 1 MG, 2X/DAY
  4. AMLODIPINE BESYLATE [Concomitant]
     Active Substance: AMLODIPINE BESYLATE
     Indication: Blood pressure abnormal
     Dosage: UNK

REACTIONS (4)
  - Arthralgia [Not Recovered/Not Resolved]
  - Gait disturbance [Unknown]
  - Product odour abnormal [Unknown]
  - Poor quality product administered [Unknown]
